FAERS Safety Report 11133945 (Version 1)
Quarter: 2015Q2

REPORT INFORMATION
  Report Type: Spontaneous
  Country: US (occurrence: US)
  Receive Date: 20150524
  Receipt Date: 20150524
  Transmission Date: 20150821
  Serious: No
  Sender: FDA-Public Use
  Company Number: US-JNJFOC-20130902275

PATIENT
  Sex: Female
  Weight: 77.11 kg

DRUGS (9)
  1. NITRO-BID [Concomitant]
     Active Substance: NITROGLYCERIN
     Indication: CHEST PAIN
  2. NEXIUM [Concomitant]
     Active Substance: ESOMEPRAZOLE MAGNESIUM
     Indication: GASTRIC DISORDER
  3. LEVOTHYROXINE [Concomitant]
     Active Substance: LEVOTHYROXINE
     Indication: THYROID DISORDER
     Route: 048
     Dates: start: 2003
  4. XANAX [Concomitant]
     Active Substance: ALPRAZOLAM
     Route: 048
     Dates: start: 2004
  5. VITAMIN B12 [Concomitant]
     Active Substance: CYANOCOBALAMIN
  6. INVOKANA [Suspect]
     Active Substance: CANAGLIFLOZIN
     Indication: DIABETES MELLITUS
     Route: 048
     Dates: start: 20130801
  7. METOPROLOL [Concomitant]
     Active Substance: METOPROLOL
     Indication: CARDIAC DISORDER
  8. WARFARIN [Concomitant]
     Active Substance: WARFARIN
     Route: 048
     Dates: start: 2003
  9. TYLENOL [Concomitant]
     Active Substance: ACETAMINOPHEN
     Indication: PAIN

REACTIONS (1)
  - Blood glucose fluctuation [Not Recovered/Not Resolved]
